FAERS Safety Report 9216107 (Version 3)
Quarter: 2013Q2

REPORT INFORMATION
  Report Type: Spontaneous
  Country: DE (occurrence: None)
  Receive Date: 20130402
  Receipt Date: 20130508
  Transmission Date: 20140414
  Serious: Yes (Hospitalization)
  Sender: FDA-Public Use
  Company Number: 2013MPI00174

PATIENT
  Age: 19 Year
  Sex: Female

DRUGS (10)
  1. BRENTUXIMAB VEDOTIN [Suspect]
     Indication: HODGKIN^S DISEASE
     Dosage: QCYCLE
     Route: 042
     Dates: start: 20130212, end: 20130305
  2. CYCLOPHOSPHAMIDE [Suspect]
     Indication: HODGKIN^S DISEASE
     Dosage: QCYCLE
     Dates: start: 20130213, end: 20130306
  3. DOXORUBICIN [Suspect]
     Indication: HODGKIN^S DISEASE
     Dosage: QCYCLE
     Dates: start: 20130213, end: 20130306
  4. ETOPOSIDE [Suspect]
     Indication: HODGKIN^S DISEASE
     Dosage: QCYCLE
     Dates: start: 20130213, end: 20130308
  5. DACARBAZINE [Suspect]
     Indication: HODGKIN^S DISEASE
     Dosage: QCYCLE
     Dates: start: 20130214, end: 20130308
  6. DEXAMETHASONE [Suspect]
     Indication: HODGKIN^S DISEASE
     Dosage: QCYCLE
     Dates: start: 20130213, end: 20130309
  7. PEGFILGRASTIM (PEGFILGRASTIM) [Concomitant]
  8. COTRIM (SULFAMETHOXAZOLE, TRIMETHOPRIM) [Concomitant]
  9. ACICLOVIR (ACICLOVIR SODIUM) [Concomitant]
  10. AVELOX (MOXIFLOXACIN HYDROCHLORIDE) [Concomitant]

REACTIONS (3)
  - Pancytopenia [None]
  - Pyrexia [None]
  - Upper respiratory tract infection [None]
